FAERS Safety Report 4870651-9 (Version None)
Quarter: 2006Q1

REPORT INFORMATION
  Report Type: 
  Country: None (occurrence: None)
  Receive Date: 20060103
  Receipt Date: 20051222
  Transmission Date: 20060701
  Serious: Yes (Hospitalization)
  Sender: FDA-Public Use
  Company Number: 2005UW19363

PATIENT
  Sex: Female

DRUGS (2)
  1. TOPROL-XL [Suspect]
     Dosage: X 8 DAYS
     Route: 048
  2. TOPAMAX [Suspect]

REACTIONS (1)
  - MEDICATION ERROR [None]
